FAERS Safety Report 20055825 (Version 1)
Quarter: 2021Q4

REPORT INFORMATION
  Report Type: Spontaneous
  Country: DE (occurrence: DE)
  Receive Date: 20211111
  Receipt Date: 20211111
  Transmission Date: 20220303
  Serious: Yes (Congenital Anomaly)
  Sender: FDA-Public Use
  Company Number: DE-EMBRYOTOX-202009082

PATIENT
  Age: 0 Year

DRUGS (6)
  1. LAMOTRIGINE [Suspect]
     Active Substance: LAMOTRIGINE
     Indication: Product used for unknown indication
     Dosage: 400 [MG/D ]/ DOSAGE INCREASED FROM WEEK 10 2 SEPARATED DOSES
     Route: 064
     Dates: start: 20200612, end: 20201123
  2. ACETAMINOPHEN [Concomitant]
     Active Substance: ACETAMINOPHEN
     Indication: Product used for unknown indication
     Dosage: 500 (MG/D (BEI BEDARF))/ IF REQUIRED
     Route: 064
  3. Folsaure AbZ 5 mg Tabletten [Concomitant]
     Indication: Product used for unknown indication
     Dosage: 5 [MG/D (BIS 0.8 MG/D) ]
     Route: 064
  4. l-thyroxin 100 henning [Concomitant]
     Indication: Product used for unknown indication
     Route: 064
     Dates: start: 20200612, end: 20201123
  5. CETIRIZINE [Concomitant]
     Active Substance: CETIRIZINE HYDROCHLORIDE
     Indication: Product used for unknown indication
     Route: 064
     Dates: start: 20200612, end: 20201123
  6. IBUPROFEN [Concomitant]
     Active Substance: IBUPROFEN
     Indication: Product used for unknown indication
     Route: 064

REACTIONS (2)
  - Spina bifida [Not Recovered/Not Resolved]
  - Foetal exposure during pregnancy [Unknown]
